FAERS Safety Report 4341930-9 (Version None)
Quarter: 2004Q2

REPORT INFORMATION
  Report Type: 
  Country: None (occurrence: None)
  Receive Date: 20040413
  Receipt Date: 20040401
  Transmission Date: 20050107
  Serious: Yes (Death, Other)
  Sender: FDA-Public Use
  Company Number: 2004207365US

PATIENT
  Sex: Female

DRUGS (4)
  1. PROVERA [Suspect]
  2. ESTRACE [Suspect]
  3. ESTRADIOL [Suspect]
  4. MEDROXYPROGESTERONE ACETATE [Suspect]

REACTIONS (1)
  - CEREBROVASCULAR ACCIDENT [None]
